FAERS Safety Report 24006769 (Version 1)
Quarter: 2024Q2

REPORT INFORMATION
  Report Type: Spontaneous
  Country: US (occurrence: None)
  Receive Date: 20240624
  Receipt Date: 20240624
  Transmission Date: 20240716
  Serious: Yes (Other)
  Sender: FDA-Public Use
  Company Number: None

PATIENT
  Age: 65 Year
  Sex: Female
  Weight: 55.35 kg

DRUGS (4)
  1. PROLIA [Suspect]
     Active Substance: DENOSUMAB
     Indication: Osteoporosis
     Dosage: OTHER FREQUENCY : EVERY SIX MONTHS;?
     Route: 058
     Dates: start: 20230721, end: 20240214
  2. CALCIUM [Concomitant]
     Active Substance: CALCIUM
  3. vitamin D [Concomitant]
  4. MAGNESIUM [Concomitant]

REACTIONS (1)
  - Tinnitus [None]

NARRATIVE: CASE EVENT DATE: 20240324
